FAERS Safety Report 23952063 (Version 2)
Quarter: 2024Q2

REPORT INFORMATION
  Report Type: Report from Study
  Country: DE (occurrence: DE)
  Receive Date: 20240607
  Receipt Date: 20240611
  Transmission Date: 20240716
  Serious: Yes (Hospitalization, Other)
  Sender: FDA-Public Use
  Company Number: DE-KYOWAKIRIN-2024KK013543

PATIENT

DRUGS (3)
  1. BUROSUMAB [Suspect]
     Active Substance: BUROSUMAB
     Indication: Hereditary hypophosphataemic rickets
     Dosage: 8 MG
     Route: 058
     Dates: start: 20201028
  2. BUROSUMAB [Suspect]
     Active Substance: BUROSUMAB
     Dosage: 15 MG
     Route: 058
     Dates: start: 20240521
  3. BUROSUMAB [Suspect]
     Active Substance: BUROSUMAB
     Dosage: 15 MG
     Route: 058
     Dates: start: 20240604

REACTIONS (4)
  - Unresponsive to stimuli [Recovered/Resolved]
  - Respiratory rate increased [Recovered/Resolved]
  - Pyrexia [Recovered/Resolved]
  - Vomiting [Recovered/Resolved]

NARRATIVE: CASE EVENT DATE: 20240530
